FAERS Safety Report 7450121-4 (Version None)
Quarter: 2011Q2

REPORT INFORMATION
  Report Type: 
  Country: None (occurrence: None)
  Receive Date: 20110502
  Receipt Date: 20110417
  Transmission Date: 20111010
  Serious: Yes (Other)
  Sender: FDA-Public Use
  Company Number: IT-CELGENEUS-083-20785-11042209

PATIENT

DRUGS (1)
  1. THALIDOMIDE [Suspect]
     Route: 048

REACTIONS (1)
  - ACUTE MYELOID LEUKAEMIA [None]
